FAERS Safety Report 20287808 (Version 1)
Quarter: 2022Q1

REPORT INFORMATION
  Report Type: Spontaneous
  Country: US (occurrence: US)
  Receive Date: 20220104
  Receipt Date: 20220104
  Transmission Date: 20220424
  Serious: No
  Sender: FDA-Public Use
  Company Number: US-ELI_LILLY_AND_COMPANY-US202112003335

PATIENT
  Age: 77 Year
  Sex: Female

DRUGS (1)
  1. TALTZ [Suspect]
     Active Substance: IXEKIZUMAB
     Indication: Product used for unknown indication
     Dosage: UNK UNK, UNKNOWN
     Route: 065

REACTIONS (7)
  - General physical health deterioration [Unknown]
  - Pain [Unknown]
  - Upper limb fracture [Unknown]
  - Fall [Unknown]
  - Accident [Unknown]
  - Hand fracture [Unknown]
  - Underdose [Unknown]

NARRATIVE: CASE EVENT DATE: 20211101
